FAERS Safety Report 11758028 (Version 2)
Quarter: 2015Q4

REPORT INFORMATION
  Report Type: Spontaneous
  Country: US (occurrence: US)
  Receive Date: 20151120
  Receipt Date: 20151123
  Transmission Date: 20160304
  Serious: Yes (Death)
  Sender: FDA-Public Use
  Company Number: US-JAZZ-2013-138

PATIENT
  Sex: Male

DRUGS (7)
  1. DIGOXIN. [Concomitant]
     Active Substance: DIGOXIN
  2. FAZACLO [Suspect]
     Active Substance: CLOZAPINE
     Dosage: 100-150 MG, QD
     Route: 048
     Dates: start: 20130408, end: 20130415
  3. MULTIVITAMIN [Concomitant]
     Active Substance: VITAMINS
  4. PRIMIDONE. [Concomitant]
     Active Substance: PRIMIDONE
  5. LOPRESSOR [Concomitant]
     Active Substance: METOPROLOL TARTRATE
  6. VITAMIN D3 [Concomitant]
     Active Substance: CHOLECALCIFEROL
  7. PROTONIX [Concomitant]
     Active Substance: PANTOPRAZOLE SODIUM

REACTIONS (1)
  - Pneumonia aspiration [Fatal]
